FAERS Safety Report 4588196-2 (Version None)
Quarter: 2005Q1

REPORT INFORMATION
  Report Type: 
  Country: None (occurrence: None)
  Receive Date: 20050221
  Receipt Date: 20050210
  Transmission Date: 20050727
  Serious: Yes (Other)
  Sender: FDA-Public Use
  Company Number: SE-GLAXOSMITHKLINE-B0371964A

PATIENT
  Sex: Female

DRUGS (2)
  1. VALTREX [Suspect]
  2. VALPROATE SODIUM [Suspect]
     Indication: EPILEPSY

REACTIONS (2)
  - DRUG INTERACTION [None]
  - EPILEPSY [None]
